FAERS Safety Report 9980407 (Version 1)
Quarter: 2014Q1

REPORT INFORMATION
  Report Type: Spontaneous
  Country: US (occurrence: US)
  Receive Date: 20140307
  Receipt Date: 20140307
  Transmission Date: 20141002
  Serious: No
  Sender: FDA-Public Use
  Company Number: US-009507513-1403USA000149

PATIENT
  Age: 33 Year
  Sex: Female

DRUGS (8)
  1. NEXPLANON [Suspect]
     Indication: CONVULSION
     Dosage: 1 SINGLE ROD, UNK
     Route: 059
     Dates: start: 20140110
  2. NEXPLANON [Suspect]
     Indication: HORMONE THERAPY
  3. KLONOPIN [Concomitant]
  4. PHENOBARBITAL [Concomitant]
  5. DEPAKOTE [Concomitant]
  6. TRILEPTAL [Concomitant]
  7. VIMPAT [Concomitant]
  8. ATIVAN [Concomitant]

REACTIONS (3)
  - Oropharyngeal pain [Not Recovered/Not Resolved]
  - Therapeutic response unexpected [Unknown]
  - Drug administration error [Unknown]
